FAERS Safety Report 10071357 (Version 1)
Quarter: 2014Q2

REPORT INFORMATION
  Report Type: Spontaneous
  Country: FR (occurrence: JP)
  Receive Date: 20140410
  Receipt Date: 20140410
  Transmission Date: 20141212
  Serious: Yes (Hospitalization)
  Sender: FDA-Public Use
  Company Number: JP-FRI-1000066396

PATIENT
  Sex: Female

DRUGS (4)
  1. MILNACIPRAN [Suspect]
     Dosage: 75 MG
     Route: 048
  2. MILNACIPRAN [Suspect]
     Dosage: 100 MG (25 MG QAM AND NOON; 50 MG IN EVENING)
  3. MILNACIPRAN [Suspect]
     Dosage: 100 MG
  4. CYMBALTA [Concomitant]
     Route: 048

REACTIONS (3)
  - Suicidal ideation [Unknown]
  - Feeling abnormal [Unknown]
  - Nausea [Unknown]
